FAERS Safety Report 13133031 (Version 1)
Quarter: 2017Q1

REPORT INFORMATION
  Report Type: Spontaneous
  Country: GB (occurrence: GB)
  Receive Date: 20170120
  Receipt Date: 20170120
  Transmission Date: 20170428
  Serious: Yes (Hospitalization)
  Sender: FDA-Public Use
  Company Number: GB-TEVA-729304ACC

PATIENT
  Age: 69 Year
  Sex: Male

DRUGS (3)
  1. MYFENAX [Suspect]
     Active Substance: MYCOPHENOLATE MOFETIL
  2. PREDNISOLONE. [Suspect]
     Active Substance: PREDNISOLONE
  3. DEXIMUNE [Suspect]
     Active Substance: CYCLOSPORINE

REACTIONS (1)
  - Critical illness [Unknown]
